FAERS Safety Report 7494593-8 (Version None)
Quarter: 2011Q2

REPORT INFORMATION
  Report Type: 
  Country: None (occurrence: None)
  Receive Date: 20110520
  Receipt Date: 20110509
  Transmission Date: 20111010
  Serious: Yes (Disabling, Other)
  Sender: FDA-Public Use
  Company Number: PHHY2011NO17169

PATIENT
  Sex: Female
  Weight: 68 kg

DRUGS (6)
  1. SOBRIL [Concomitant]
     Dosage: 10 MG IN THE EVENING
  2. NEURONTIN [Concomitant]
     Dosage: 300 MG, 5 TIMES DAILY
  3. PARACET [Concomitant]
     Dosage: 500 MG, 5 TIMES DAILY
  4. TASIGNA [Suspect]
     Indication: CHRONIC MYELOID LEUKAEMIA
     Dosage: 400 MG, BID
     Dates: start: 20080901
  5. PLAVIX [Concomitant]
     Dosage: 75 MG, QD
  6. PAROXETINE HCL [Concomitant]
     Dosage: 20 MG, DAILY

REACTIONS (4)
  - PERIPHERAL ISCHAEMIA [None]
  - HAEMOGLOBIN DECREASED [None]
  - PLATELET COUNT INCREASED [None]
  - EMBOLISM ARTERIAL [None]
